FAERS Safety Report 5345074-9 (Version None)
Quarter: 2007Q2

REPORT INFORMATION
  Report Type: 
  Country: None (occurrence: None)
  Receive Date: 20070601
  Receipt Date: 20070518
  Transmission Date: 20071010
  Serious: Yes (Hospitalization)
  Sender: FDA-Public Use
  Company Number: LRX_00076_2007

PATIENT
  Age: 68 Year
  Sex: Female

DRUGS (10)
  1. TREPROSTINIL SODIUM (INHALED) (SUSPENSION) [Suspect]
     Indication: PULMONARY HYPERTENSION
     Dosage: 45 MCG (45 MCG, 1 D), INHALATION
     Route: 055
     Dates: start: 20060330
  2. ASPIRIN [Concomitant]
  3. BOSENTAN (BOSENTAN) (TABLETS) [Concomitant]
  4. PRAVASTATIN SODIUM [Concomitant]
  5. LASIX [Concomitant]
  6. ALDACTONE    /0006201/ (SPIRINOLACTONE) [Concomitant]
  7. LANOXIN [Concomitant]
  8. ALLOPURINOL [Concomitant]
  9. SERETIDE   /01420901/(SERETIDE) [Concomitant]
  10. DALMANE [Concomitant]

REACTIONS (1)
  - LOWER RESPIRATORY TRACT INFECTION [None]
